FAERS Safety Report 24608474 (Version 1)
Quarter: 2024Q4

REPORT INFORMATION
  Report Type: Spontaneous
  Country: US (occurrence: US)
  Receive Date: 20241112
  Receipt Date: 20241112
  Transmission Date: 20250115
  Serious: Yes (Hospitalization, Disabling, Other)
  Sender: ASTELLAS
  Company Number: US-ASTELLAS-2024-AER-016394

PATIENT
  Age: 31 Year
  Sex: Female

DRUGS (6)
  1. TACROLIMUS [Suspect]
     Active Substance: TACROLIMUS
     Indication: Allogenic stem cell transplantation
     Route: 065
     Dates: start: 2018
  2. TACROLIMUS [Suspect]
     Active Substance: TACROLIMUS
     Indication: Prophylaxis against graft versus host disease
  3. TACROLIMUS [Suspect]
     Active Substance: TACROLIMUS
     Indication: Chronic graft versus host disease in lung
  4. RITUXIMAB [Suspect]
     Active Substance: RITUXIMAB
     Indication: Chronic graft versus host disease in lung
     Dosage: INITIAL DOSE, FOR 4 WEEKS
     Route: 065
     Dates: start: 202005, end: 20210303
  5. METHOTREXATE [Concomitant]
     Active Substance: METHOTREXATE
     Indication: Allogenic stem cell transplantation
     Route: 065
     Dates: start: 2018
  6. METHOTREXATE [Concomitant]
     Active Substance: METHOTREXATE
     Indication: Prophylaxis against graft versus host disease

REACTIONS (4)
  - Purpura fulminans [Recovered/Resolved with Sequelae]
  - Septic shock [Unknown]
  - Capnocytophaga sepsis [Unknown]
  - Off label use [Unknown]

NARRATIVE: CASE EVENT DATE: 20180101
